FAERS Safety Report 12966281 (Version 1)
Quarter: 2016Q4

REPORT INFORMATION
  Report Type: Spontaneous
  Country: FR (occurrence: FR)
  Receive Date: 20161122
  Receipt Date: 20161122
  Transmission Date: 20170207
  Serious: Yes (Other)
  Sender: FDA-Public Use
  Company Number: FR-GILEAD-2016-0244060

PATIENT
  Age: 71 Year
  Sex: Male

DRUGS (6)
  1. CAELYX [Suspect]
     Active Substance: DOXORUBICIN HYDROCHLORIDE
     Indication: WALDENSTROM^S MACROGLOBULINAEMIA
     Dosage: 2 MG,
     Route: 042
     Dates: start: 201501, end: 201508
  2. ZYDELIG [Suspect]
     Active Substance: IDELALISIB
     Indication: WALDENSTROM^S MACROGLOBULINAEMIA
     Dosage: UNK
     Route: 048
     Dates: start: 201410, end: 201501
  3. HOLOXAN [Suspect]
     Active Substance: IFOSFAMIDE
     Indication: WALDENSTROM^S MACROGLOBULINAEMIA
     Dosage: UNK
     Route: 065
     Dates: start: 201501, end: 201510
  4. ETOPOSIDE. [Suspect]
     Active Substance: ETOPOSIDE
     Indication: WALDENSTROM^S MACROGLOBULINAEMIA
     Dosage: UNK
     Route: 065
     Dates: start: 201501, end: 201510
  5. IMBRUVICA [Concomitant]
     Active Substance: IBRUTINIB
     Dosage: UNK
     Route: 048
     Dates: start: 201510, end: 201605
  6. RITUXIMAB [Suspect]
     Active Substance: RITUXIMAB
     Indication: WALDENSTROM^S MACROGLOBULINAEMIA
     Dosage: UNK
     Route: 065
     Dates: start: 201501, end: 201510

REACTIONS (1)
  - Spindle cell sarcoma [Not Recovered/Not Resolved]

NARRATIVE: CASE EVENT DATE: 20150825
